FAERS Safety Report 9275279 (Version 1)
Quarter: 2013Q1

REPORT INFORMATION
  Report Type: Spontaneous
  Country: US (occurrence: None)
  Receive Date: 20130131
  Receipt Date: 20130131
  Transmission Date: 20140127
  Serious: Yes (Life-Threatening)
  Sender: FDA-Public Use
  Company Number: 54973 AE # 1208

PATIENT
  Age: 8 Month
  Sex: Male

DRUGS (2)
  1. HYLAND^S BABY TEETHING TABLETS [Suspect]
     Indication: TEETHING
     Dosage: 2 TABS AM, PM, HS, QD, EOD
  2. HYLAND^S BABY TEETHING TABLETS [Suspect]
     Indication: ANALGESIC THERAPY
     Dosage: 2 TABS AM, PM, HS, QD, EOD

REACTIONS (2)
  - Dyskinesia [None]
  - Convulsion [None]
